FAERS Safety Report 13196290 (Version 1)
Quarter: 2017Q1

REPORT INFORMATION
  Report Type: Spontaneous
  Country: US (occurrence: US)
  Receive Date: 20170208
  Receipt Date: 20170208
  Transmission Date: 20170428
  Serious: No
  Sender: FDA-Public Use
  Company Number: US-PFIZER INC-2017055998

PATIENT
  Sex: Female

DRUGS (2)
  1. NEURONTIN [Suspect]
     Active Substance: GABAPENTIN
  2. CYMBALTA [Suspect]
     Active Substance: DULOXETINE HYDROCHLORIDE

REACTIONS (2)
  - Malaise [Unknown]
  - Drug ineffective [Unknown]
